FAERS Safety Report 9449270 (Version 3)
Quarter: 2013Q3

REPORT INFORMATION
  Report Type: Spontaneous
  Country: CY (occurrence: CY)
  Receive Date: 20130808
  Receipt Date: 20130905
  Transmission Date: 20140515
  Serious: Yes (Hospitalization)
  Sender: FDA-Public Use
  Company Number: CY-GLAXOSMITHKLINE-B0914242A

PATIENT
  Sex: Female

DRUGS (1)
  1. ZINACEF [Suspect]
     Indication: PROPHYLAXIS
     Route: 042
     Dates: start: 20130805, end: 20130805

REACTIONS (7)
  - Coma [Recovered/Resolved]
  - Face oedema [Recovered/Resolved]
  - Laryngeal oedema [Recovered/Resolved]
  - Hypotension [Recovered/Resolved]
  - Dizziness [Recovered/Resolved]
  - Circulatory collapse [Recovered/Resolved]
  - Anaphylactic shock [Recovered/Resolved]
